FAERS Safety Report 10501657 (Version 15)
Quarter: 2016Q1

REPORT INFORMATION
  Report Type: Spontaneous
  Country: US (occurrence: US)
  Receive Date: 20141007
  Receipt Date: 20160122
  Transmission Date: 20160525
  Serious: Yes (Hospitalization, Other)
  Sender: FDA-Public Use
  Company Number: US-PFIZER INC-2014247157

PATIENT
  Age: 61 Year
  Sex: Female
  Weight: 61.22 kg

DRUGS (11)
  1. SUTENT [Suspect]
     Active Substance: SUNITINIB MALATE
     Indication: OVARIAN CANCER
     Dosage: 50 MG, CYCLIC (DAILY FOR 14 DAYS ON AND 14 DAYS OFF)
     Route: 048
     Dates: start: 20140902, end: 20141113
  2. SUTENT [Suspect]
     Active Substance: SUNITINIB MALATE
     Dosage: 50 MG DAILY FOR 14 DAYS ON AND 14 OFF
     Route: 048
     Dates: start: 20150203
  3. SUTENT [Suspect]
     Active Substance: SUNITINIB MALATE
     Dosage: 50 MG, CYCLIC (2 WEEKS ON/2 WEEKS OFF)
     Route: 048
     Dates: start: 20151226
  4. SUTENT [Suspect]
     Active Substance: SUNITINIB MALATE
     Dosage: 50 MG, 1X/DAY
     Route: 048
     Dates: start: 20141030
  5. SUTENT [Suspect]
     Active Substance: SUNITINIB MALATE
     Dosage: 25 MG, 1X/DAY
     Route: 048
     Dates: start: 20141201, end: 20150225
  6. TYLENOL [Concomitant]
     Active Substance: ACETAMINOPHEN
     Dosage: UNK, AS NEEDED
  7. SUTENT [Suspect]
     Active Substance: SUNITINIB MALATE
     Dosage: 50 MG, CYCLIC (1 DAY 14 DAYS ON 14 DAYS OFF)
     Route: 048
     Dates: end: 20150311
  8. VICODIN [Concomitant]
     Active Substance: ACETAMINOPHEN\HYDROCODONE BITARTRATE
     Dosage: UNK, AS NEEDED
  9. PHENERGAN [Concomitant]
     Active Substance: PROMETHAZINE HYDROCHLORIDE
     Dosage: UNK, AS NEEDED
  10. SUTENT [Suspect]
     Active Substance: SUNITINIB MALATE
     Indication: UTERINE CANCER
     Dosage: 25 MG, DAILY (14 DAYS THAN 14 DAYS OFF)
     Route: 048
     Dates: start: 20141201
  11. XANAX [Concomitant]
     Active Substance: ALPRAZOLAM
     Dosage: UNK, AS NEEDED

REACTIONS (20)
  - Pruritus [Recovered/Resolved]
  - Aphonia [Recovered/Resolved]
  - Pruritus [Recovered/Resolved]
  - Pain [Unknown]
  - Pruritus [Recovered/Resolved]
  - Erythema [Recovered/Resolved]
  - Hypothyroidism [Recovered/Resolved]
  - Ovarian cancer [Unknown]
  - Fluid retention [Unknown]
  - Musculoskeletal pain [Recovered/Resolved]
  - Disease progression [Unknown]
  - Erythema [Recovered/Resolved]
  - Pyrexia [Unknown]
  - Product use issue [Unknown]
  - Dyspnoea [Unknown]
  - Periorbital oedema [Unknown]
  - Peritonitis [Recovered/Resolved]
  - Abdominal pain [Not Recovered/Not Resolved]
  - Tremor [Recovered/Resolved]
  - Erythema [Recovered/Resolved]

NARRATIVE: CASE EVENT DATE: 201409
